FAERS Safety Report 8269279-2 (Version None)
Quarter: 2012Q2

REPORT INFORMATION
  Report Type: 
  Country: None (occurrence: None)
  Receive Date: 20120409
  Receipt Date: 20120320
  Transmission Date: 20120825
  Serious: Yes (Other)
  Sender: FDA-Public Use
  Company Number: AU-ROCHE-1050394

PATIENT
  Sex: Male
  Weight: 95.1 kg

DRUGS (4)
  1. MAGNESIUM SULFATE [Concomitant]
  2. VEMURAFENIB [Suspect]
     Indication: METASTATIC MALIGNANT MELANOMA
     Dosage: DATE OF LAST DOSE PRIOR TO EVENT: 01/MAR/2012
     Route: 048
     Dates: start: 20110131
  3. PREDNEFRIN FORTE [Concomitant]
     Dates: start: 20120120
  4. ACETAMINOPHEN [Concomitant]
     Dates: start: 20110127

REACTIONS (1)
  - MALIGNANT MELANOMA IN SITU [None]
